FAERS Safety Report 10258189 (Version 1)
Quarter: 2014Q2

REPORT INFORMATION
  Report Type: Spontaneous
  Country: US (occurrence: None)
  Receive Date: 20140623
  Receipt Date: 20140623
  Transmission Date: 20141212
  Serious: Yes (Other)
  Sender: FDA-Public Use
  Company Number: None

PATIENT
  Age: 63 Year
  Sex: Female
  Weight: 120.2 kg

DRUGS (1)
  1. PROLIA [Suspect]
     Indication: OSTEOPOROSIS
     Dosage: 6 MONTHS GIVEN INTO/UNDER THE SKIN

REACTIONS (8)
  - Pain in extremity [None]
  - Pain in extremity [None]
  - Bone pain [None]
  - Myalgia [None]
  - Movement disorder [None]
  - Impaired healing [None]
  - Abdominal discomfort [None]
  - Tooth extraction [None]
